FAERS Safety Report 9377098 (Version 1)
Quarter: 2013Q3

REPORT INFORMATION
  Report Type: Spontaneous
  Country: US (occurrence: US)
  Receive Date: 20130701
  Receipt Date: 20130701
  Transmission Date: 20140515
  Serious: No
  Sender: FDA-Public Use
  Company Number: US-JNJFOC-20130610560

PATIENT
  Sex: Male
  Weight: 131.54 kg

DRUGS (1)
  1. INVEGA [Suspect]
     Indication: OVERDOSE
     Route: 048
     Dates: start: 2011

REACTIONS (4)
  - Chest pain [Not Recovered/Not Resolved]
  - Bradyphrenia [Not Recovered/Not Resolved]
  - Drug effect incomplete [Not Recovered/Not Resolved]
  - Drug prescribing error [Unknown]
